FAERS Safety Report 4285877-5 (Version None)
Quarter: 2004Q1

REPORT INFORMATION
  Report Type: 
  Country: None (occurrence: None)
  Receive Date: 20040203
  Receipt Date: 20040123
  Transmission Date: 20041129
  Serious: Yes (Hospitalization)
  Sender: FDA-Public Use
  Company Number: 2003IM000451

PATIENT
  Age: 51 Year
  Sex: Female
  Weight: 41.5 kg

DRUGS (5)
  1. INTERFERON GAMMA-1B (INTERFERON GAMMA-1B) [Suspect]
     Indication: OVARIAN CANCER
     Dosage: 100 UG;TIW;SUBCUTANEOUS
     Route: 058
     Dates: start: 20030410, end: 20030428
  2. CARBOPLATIN [Suspect]
     Indication: OVARIAN CANCER
     Dosage: Q32;INTRAVENOUS
     Route: 042
     Dates: start: 20030410, end: 20030410
  3. PACLITAXEL [Suspect]
     Indication: OVARIAN CANCER
     Dosage: Q3W;INTRAVENOUS
     Route: 042
     Dates: start: 20030410, end: 20030410
  4. PARACETAMOL [Concomitant]
  5. METOCLOPRAMIDE [Concomitant]

REACTIONS (4)
  - ENTEROBACTER INFECTION [None]
  - INCISIONAL DRAINAGE [None]
  - PSEUDOMONAS INFECTION [None]
  - WOUND DRAINAGE [None]
